FAERS Safety Report 12590797 (Version 1)
Quarter: 2016Q3

REPORT INFORMATION
  Report Type: Report from Study
  Country: JP (occurrence: JP)
  Receive Date: 20160726
  Receipt Date: 20160726
  Transmission Date: 20161109
  Serious: Yes (Death)
  Sender: FDA-Public Use
  Company Number: JP-CIPLA LTD.-2016JP09746

PATIENT

DRUGS (2)
  1. CARBOPLATIN. [Suspect]
     Active Substance: CARBOPLATIN
     Indication: CERVIX CARCINOMA STAGE II
     Dosage: AUC-6, FOR 2 HR, EVERY 21 DAYS
     Route: 042
  2. DOCETAXEL. [Suspect]
     Active Substance: DOCETAXEL
     Indication: CERVIX CARCINOMA STAGE II
     Dosage: 60 MG/M2, FOR 1 HR, EVERY 21 DAYS
     Route: 042

REACTIONS (1)
  - Disease recurrence [Fatal]
